FAERS Safety Report 4473869-2 (Version None)
Quarter: 2004Q4

REPORT INFORMATION
  Report Type: 
  Country: None (occurrence: None)
  Receive Date: 20041008
  Receipt Date: 20041008
  Transmission Date: 20050328
  Serious: Yes (Hospitalization)
  Sender: FDA-Public Use
  Company Number: None

PATIENT
  Age: 86 Year
  Sex: Male
  Weight: 80.5 kg

DRUGS (2)
  1. ZOSYN [Suspect]
     Indication: CHRONIC OBSTRUCTIVE AIRWAYS DISEASE
     Dosage: 3.375 GM  Q 6H IV
     Route: 042
     Dates: start: 20040913, end: 20040921
  2. ZOSYN [Suspect]
     Indication: PNEUMONIA
     Dosage: 3.375 GM  Q 6H IV
     Route: 042
     Dates: start: 20040913, end: 20040921

REACTIONS (1)
  - DIARRHOEA [None]
